FAERS Safety Report 8524493-3 (Version None)
Quarter: 2012Q3

REPORT INFORMATION
  Report Type: 
  Country: None (occurrence: None)
  Receive Date: 20120716
  Receipt Date: 20120716
  Transmission Date: 20120928
  Serious: Yes (Hospitalization)
  Sender: FDA-Public Use
  Company Number: None

PATIENT
  Sex: Female
  Weight: 100.9 kg

DRUGS (2)
  1. IFOSFAMIDE [Suspect]
     Dosage: 6600 MG
  2. PACLITAXEL [Suspect]
     Dosage: 270 MG

REACTIONS (7)
  - FEELING ABNORMAL [None]
  - CULTURE URINE POSITIVE [None]
  - PYREXIA [None]
  - DYSURIA [None]
  - CONSTIPATION [None]
  - ESCHERICHIA TEST POSITIVE [None]
  - RHINORRHOEA [None]
